FAERS Safety Report 5226142-9 (Version None)
Quarter: 2007Q1

REPORT INFORMATION
  Report Type: 
  Country: None (occurrence: None)
  Receive Date: 20070201
  Receipt Date: 20070130
  Transmission Date: 20070707
  Serious: Yes (Hospitalization)
  Sender: FDA-Public Use
  Company Number: 2006JP005339

PATIENT
  Age: 76 Year
  Sex: Female

DRUGS (2)
  1. CEFAZOLIN [Suspect]
     Indication: INFECTION PROPHYLAXIS
     Dosage: 1G TWICE PER DAY
     Route: 042
     Dates: start: 20051125, end: 20051129
  2. AMPICILLIN SODIUM/SULBACTAM SODIUM [Suspect]
     Indication: INFECTION PROPHYLAXIS
     Dosage: 1.5G TWICE PER DAY
     Route: 042
     Dates: start: 20051129, end: 20051202

REACTIONS (12)
  - ABDOMINAL PAIN [None]
  - ANOREXIA [None]
  - CLOSTRIDIUM DIFFICILE TOXIN TEST [None]
  - CLOSTRIDIUM DIFFICILE TOXIN TEST POSITIVE [None]
  - CONDITION AGGRAVATED [None]
  - CULTURE STOOL POSITIVE [None]
  - DIARRHOEA [None]
  - FREQUENT BOWEL MOVEMENTS [None]
  - HYPERTHERMIA [None]
  - METHICILLIN-RESISTANT STAPHYLOCOCCAL AUREUS TEST POSITIVE [None]
  - PSEUDOMEMBRANOUS COLITIS [None]
  - PYREXIA [None]
